FAERS Safety Report 10498450 (Version 1)
Quarter: 2014Q4

REPORT INFORMATION
  Report Type: Report from Study
  Country: US (occurrence: US)
  Receive Date: 20141006
  Receipt Date: 20141006
  Transmission Date: 20150528
  Serious: Yes (Other)
  Sender: FDA-Public Use
  Company Number: US-BRISTOL-MYERS SQUIBB COMPANY-21444724

PATIENT
  Age: 79 Year
  Sex: Male
  Weight: 104.76 kg

DRUGS (11)
  1. AMLODIPINE [Concomitant]
     Active Substance: AMLODIPINE BESYLATE
  2. NOVOLIN [Concomitant]
     Active Substance: INSULIN HUMAN
  3. PRAVACHOL [Concomitant]
     Active Substance: PRAVASTATIN SODIUM
  4. LASIX [Concomitant]
     Active Substance: FUROSEMIDE
  5. METOPROLOL [Concomitant]
     Active Substance: METOPROLOL
  6. GLUCOSAMINE [Concomitant]
     Active Substance: GLUCOSAMINE
  7. BYETTA [Suspect]
     Active Substance: EXENATIDE
  8. LYRICA [Concomitant]
     Active Substance: PREGABALIN
  9. LUPRON [Concomitant]
     Active Substance: LEUPROLIDE ACETATE
  10. GLIPIZIDE. [Concomitant]
     Active Substance: GLIPIZIDE
  11. FENOFIBRATE. [Concomitant]
     Active Substance: FENOFIBRATE

REACTIONS (2)
  - Spinal column stenosis [Unknown]
  - Neuropathy peripheral [Unknown]
